FAERS Safety Report 23864546 (Version 2)
Quarter: 2024Q3

REPORT INFORMATION
  Report Type: Spontaneous
  Country: US (occurrence: US)
  Receive Date: 20240516
  Receipt Date: 20240913
  Transmission Date: 20241017
  Serious: No
  Sender: INCYTE
  Company Number: US-INCYTE CORPORATION-2024IN005055

PATIENT

DRUGS (2)
  1. JAKAFI [Suspect]
     Active Substance: RUXOLITINIB
     Dosage: 5 MILLIGRAM, 1 QAM AND 2 QPM
     Route: 048
  2. JAKAFI [Suspect]
     Active Substance: RUXOLITINIB
     Dosage: 5 MILLIGRAM, BID
     Route: 048

REACTIONS (4)
  - Bone loss [Unknown]
  - Pain [Unknown]
  - Asthenia [Unknown]
  - Product dose omission issue [Unknown]
